FAERS Safety Report 8492791-8 (Version None)
Quarter: 2012Q3

REPORT INFORMATION
  Report Type: 
  Country: None (occurrence: None)
  Receive Date: 20120706
  Receipt Date: 20120702
  Transmission Date: 20120928
  Serious: Yes (Other)
  Sender: FDA-Public Use
  Company Number: US-PFIZER INC-2012103030

PATIENT
  Sex: Female
  Weight: 79.4 kg

DRUGS (12)
  1. ACCURETIC [Suspect]
     Indication: HYPERTENSION
     Dosage: 20 MG/12.5  MG, 1X/DAY
     Route: 048
  2. ALLEGRA [Concomitant]
     Indication: HYPERSENSITIVITY
     Dosage: UNK MG, 1X/DAY
  3. VITAMIN D [Concomitant]
     Indication: HYPOVITAMINOSIS
     Dosage: UNK
  4. FIORICET [Concomitant]
     Dosage: UNK, AS NEEDED
  5. LOVAZA [Concomitant]
     Dosage: UNK
  6. ALPRAZOLAM [Concomitant]
     Dosage: 0.5 MG, AS NEEDED
  7. NEXIUM [Concomitant]
     Dosage: 40 MG, 2X/DAY
  8. LACTULOSE [Concomitant]
     Indication: CONSTIPATION
     Dosage: UNK
  9. PROVENTIL-HFA [Concomitant]
     Indication: ASTHMA
     Dosage: UNK, AS NEEDED
  10. ACETYLSALICYLIC ACID [Concomitant]
     Indication: CARDIAC DISORDER
     Dosage: UNK
  11. BISACODYL [Concomitant]
     Dosage: 5 MG, UNK
  12. NARDIL [Concomitant]
     Dosage: 15 MG, 3X/DAY

REACTIONS (4)
  - BLOOD POTASSIUM DECREASED [None]
  - WEIGHT DECREASED [None]
  - HEART RATE INCREASED [None]
  - HYPERTENSION [None]
